FAERS Safety Report 9411719 (Version 1)
Quarter: 2013Q3

REPORT INFORMATION
  Report Type: Spontaneous
  Country: US (occurrence: US)
  Receive Date: 20130722
  Receipt Date: 20130722
  Transmission Date: 20140515
  Serious: Yes (Death)
  Sender: FDA-Public Use
  Company Number: US-COVIDIEN/TYCO HEALTHCARE/MALLINCKRODT-T201301115

PATIENT
  Age: 63 Year
  Sex: Male

DRUGS (1)
  1. MORPHINE EXTENDED-RELEASE [Suspect]
     Indication: PRODUCT USED FOR UNKNOWN INDICATION
     Dosage: UNK

REACTIONS (5)
  - Abdominal distension [Unknown]
  - Weight decreased [Unknown]
  - Peripheral coldness [Unknown]
  - Asthenia [Unknown]
  - Decreased appetite [Unknown]
